FAERS Safety Report 7801466-7 (Version None)
Quarter: 2011Q4

REPORT INFORMATION
  Report Type: 
  Country: None (occurrence: None)
  Receive Date: 20111006
  Receipt Date: 20111006
  Transmission Date: 20120403
  Serious: No
  Sender: FDA-Public Use
  Company Number: None

PATIENT
  Age: 62 Year
  Sex: Male
  Weight: 76.2 kg

DRUGS (1)
  1. FEBUXOSTAT [Suspect]
     Indication: GOUT
     Dosage: 40 MG EVERY DAY PO
     Route: 048
     Dates: start: 20110404, end: 20110615

REACTIONS (6)
  - RASH [None]
  - NAUSEA [None]
  - HEPATIC ENZYME INCREASED [None]
  - VOMITING [None]
  - ABDOMINAL DISTENSION [None]
  - DRUG EFFECT DECREASED [None]
